FAERS Safety Report 19855952 (Version 1)
Quarter: 2021Q3

REPORT INFORMATION
  Report Type: Spontaneous
  Country: CA (occurrence: CA)
  Receive Date: 20210920
  Receipt Date: 20210920
  Transmission Date: 20211014
  Serious: Yes (Life-Threatening, Hospitalization, Other)
  Sender: FDA-Public Use
  Company Number: CA-TEVA-2021-CA-1954312

PATIENT
  Age: 47 Year
  Sex: Male

DRUGS (3)
  1. CBD OIL [Concomitant]
     Active Substance: CANNABIDIOL\HERBALS
  2. VENLAFAXINE XR [Concomitant]
     Active Substance: VENLAFAXINE HYDROCHLORIDE
  3. TADALAFIL. [Suspect]
     Active Substance: TADALAFIL
     Indication: ERECTILE DYSFUNCTION
     Dosage: 60 MILLIGRAM DAILY;
     Route: 048

REACTIONS (5)
  - Intracranial pressure increased [Unknown]
  - Altered state of consciousness [Unknown]
  - Craniotomy [Unknown]
  - Brain oedema [Unknown]
  - Cerebrovascular accident [Unknown]
